FAERS Safety Report 5518136-0 (Version None)
Quarter: 2007Q4

REPORT INFORMATION
  Report Type: 
  Country: None (occurrence: None)
  Receive Date: 20071113
  Receipt Date: 20071113
  Transmission Date: 20080405
  Serious: Yes (Hospitalization)
  Sender: FDA-Public Use
  Company Number: None

PATIENT
  Age: 55 Year
  Sex: Male
  Weight: 102 kg

DRUGS (12)
  1. ALDESLEUKIN [Suspect]
     Indication: METASTATIC MALIGNANT MELANOMA
     Dosage: 77.76 MILLION UNITS EVERY 8 HOURS IV
     Route: 042
     Dates: start: 20070918
  2. ACETAMINOPHEN [Concomitant]
  3. NAFCILLIN SODIUM [Concomitant]
  4. FAMOTIDINE [Concomitant]
  5. ONDANSETRON [Concomitant]
  6. METOPROLOL [Concomitant]
  7. NAPROXEN [Concomitant]
  8. POTASSIUM CHLORIDE [Concomitant]
  9. PIPERACILLIN AND TAZOBACTAM [Concomitant]
  10. LORAZEPAM [Concomitant]
  11. MEPERIDINE HCL [Concomitant]
  12. REGULAR INSULIN [Concomitant]

REACTIONS (2)
  - BLOOD CULTURE POSITIVE [None]
  - CENTRAL LINE INFECTION [None]
